FAERS Safety Report 6996516-4 (Version None)
Quarter: 2010Q3

REPORT INFORMATION
  Report Type: 
  Country: None (occurrence: None)
  Receive Date: 20100918
  Receipt Date: 20090407
  Transmission Date: 20110219
  Serious: No
  Sender: FDA-Public Use
  Company Number: US-WYE-H08805509

PATIENT
  Sex: Female

DRUGS (2)
  1. EFFEXOR XR [Suspect]
     Indication: DEPRESSION
     Dosage: 75 MG - FREQUENCY UNSPECIFIED
     Route: 048
     Dates: start: 20070101
  2. EFFEXOR XR [Suspect]
     Dosage: 75 MG DAILY WITH EXTRA 37.5 MG EVERY OTHER DAY
     Route: 048

REACTIONS (4)
  - ABNORMAL BEHAVIOUR [None]
  - CONDITION AGGRAVATED [None]
  - DEPRESSION [None]
  - PRODUCT QUALITY ISSUE [None]
